FAERS Safety Report 9230311 (Version 3)
Quarter: 2013Q4

REPORT INFORMATION
  Report Type: Report from Study
  Country: CA (occurrence: CA)
  Receive Date: 20130415
  Receipt Date: 20131204
  Transmission Date: 20140711
  Serious: Yes (Other)
  Sender: FDA-Public Use
  Company Number: PHHY2010CA82804

PATIENT
  Age: 45 Year
  Sex: Female

DRUGS (5)
  1. ZOMETA [Suspect]
     Indication: BREAST CANCER METASTATIC
     Dosage: 4 MG, EVERY 6 MONTHS
     Route: 042
     Dates: start: 20101202
  2. ZOMETA [Suspect]
     Dosage: 4 MG, EVERY 4 WEEKS
     Route: 042
  3. ZOMETA [Suspect]
     Dosage: 4 MG, EVERY 12 WEEKS
     Route: 042
     Dates: end: 20110705
  4. ZOMETA [Suspect]
     Dosage: 4 MG, EVERY THREE MONTHS
     Route: 042
     Dates: end: 20131129
  5. AVASTIN [Concomitant]
     Dosage: UNK
     Dates: start: 20110321

REACTIONS (29)
  - Liver disorder [Unknown]
  - Epistaxis [Not Recovered/Not Resolved]
  - Eye infection [Unknown]
  - Eye swelling [Recovering/Resolving]
  - Eye pain [Recovering/Resolving]
  - Ocular hyperaemia [Unknown]
  - Oral infection [Unknown]
  - Visual impairment [Unknown]
  - Hunger [Unknown]
  - Toothache [Unknown]
  - Swelling [Unknown]
  - Dental caries [Unknown]
  - Tumour marker increased [Unknown]
  - Gamma-glutamyltransferase increased [Unknown]
  - Rhinorrhoea [Not Recovered/Not Resolved]
  - Nasal congestion [Unknown]
  - Dyspnoea [Unknown]
  - Heart rate increased [Unknown]
  - Bone disorder [Unknown]
  - Dizziness [Unknown]
  - Abdominal discomfort [Unknown]
  - Headache [Recovering/Resolving]
  - Fatigue [Unknown]
  - Arthralgia [Unknown]
  - Cough [Not Recovered/Not Resolved]
  - Blood pressure diastolic increased [Unknown]
  - Blood pressure systolic increased [Unknown]
  - Diarrhoea [Unknown]
  - Chills [Unknown]
